FAERS Safety Report 4598156-3 (Version None)
Quarter: 2005Q1

REPORT INFORMATION
  Report Type: 
  Country: None (occurrence: None)
  Receive Date: 20050301
  Receipt Date: 20050301
  Transmission Date: 20050727
  Serious: Yes (Hospitalization)
  Sender: FDA-Public Use
  Company Number: None

PATIENT
  Age: 79 Year
  Sex: Male
  Weight: 95 kg

DRUGS (14)
  1. HYDROXYZINE HCL [Suspect]
     Indication: POST-TRAUMATIC STRESS DISORDER
     Dosage: SEE IMAGE
  2. HYDROXYZINE HCL [Suspect]
     Indication: SOMNOLENCE
     Dosage: SEE IMAGE
  3. WARFARIN SODIUM [Concomitant]
  4. ROSIGLITAZONE [Concomitant]
  5. ATENOLOL [Concomitant]
  6. HYDROXYZINE [Concomitant]
  7. APAP TAB [Concomitant]
  8. FLUOXETINE [Concomitant]
  9. FLURAZEPAM [Concomitant]
  10. THIORIDAZINE HCL [Concomitant]
  11. BRIMONIDINE [Concomitant]
  12. GLYBURIDE [Concomitant]
  13. SIMVASTATIN [Concomitant]
  14. RANITIDINE [Concomitant]

REACTIONS (8)
  - ASTHENIA [None]
  - DRY MOUTH [None]
  - FALL [None]
  - HALLUCINATION [None]
  - MENTAL STATUS CHANGES [None]
  - RENAL FAILURE [None]
  - SELF-MEDICATION [None]
  - THERAPEUTIC AGENT TOXICITY [None]
